FAERS Safety Report 6168701-5 (Version None)
Quarter: 2009Q2

REPORT INFORMATION
  Report Type: 
  Country: None (occurrence: None)
  Receive Date: 20090427
  Receipt Date: 20090417
  Transmission Date: 20091009
  Serious: Yes (Death, Hospitalization)
  Sender: FDA-Public Use
  Company Number: JP-PFIZER INC-2009192011

PATIENT

DRUGS (4)
  1. SILDENAFIL CITRATE [Suspect]
     Dosage: 20 MG, 3X/DAY
     Dates: start: 20081210, end: 20090119
  2. SOLU-MEDROL [Suspect]
  3. BERAPROST SODIUM [Suspect]
     Route: 048
     Dates: end: 20090119
  4. ENDOXAN [Concomitant]
     Route: 042
     Dates: start: 20081120, end: 20081218

REACTIONS (2)
  - HISTIOCYTOSIS HAEMATOPHAGIC [None]
  - PULMONARY ALVEOLAR HAEMORRHAGE [None]
